FAERS Safety Report 6338546-1 (Version None)
Quarter: 2009Q3

REPORT INFORMATION
  Report Type: 
  Country: None (occurrence: None)
  Receive Date: 20090901
  Receipt Date: 20090826
  Transmission Date: 20100115
  Serious: Yes (Other)
  Sender: FDA-Public Use
  Company Number: 090820-0000929

PATIENT
  Age: 73 Year
  Sex: Male

DRUGS (2)
  1. INDOCIN [Suspect]
     Indication: BACK PAIN
     Dosage: 25 MG
  2. DICLOFENAC SODIUM [Suspect]
     Indication: BACK PAIN

REACTIONS (3)
  - COLONIC POLYP [None]
  - INTESTINAL DIAPHRAGM DISEASE [None]
  - SMALL INTESTINAL HAEMORRHAGE [None]
